FAERS Safety Report 7824533-0 (Version None)
Quarter: 2011Q4

REPORT INFORMATION
  Report Type: 
  Country: None (occurrence: None)
  Receive Date: 20111019
  Receipt Date: 20111006
  Transmission Date: 20120403
  Serious: Yes (Hospitalization)
  Sender: FDA-Public Use
  Company Number: US-BAYER-200920527NA

PATIENT
  Age: 45 Year
  Sex: Female
  Weight: 126.98 kg

DRUGS (4)
  1. ATENOLOL [Concomitant]
     Indication: HYPERTENSION
     Dosage: 50 MG (DAILY DOSE), QD,
     Route: 048
     Dates: start: 20070101
  2. YAZ [Suspect]
     Indication: CONTRACEPTION
     Dosage: 1 DF (DAILY DOSE), QD, ORAL
     Route: 048
     Dates: start: 20081101, end: 20090501
  3. IBUPROFEN (ADVIL) [Concomitant]
     Route: 048
  4. YAZ [Suspect]
     Indication: PREMENSTRUAL SYNDROME

REACTIONS (6)
  - DEEP VEIN THROMBOSIS [None]
  - PAIN [None]
  - EMOTIONAL DISTRESS [None]
  - INJURY [None]
  - GENERAL PHYSICAL HEALTH DETERIORATION [None]
  - ANXIETY [None]
